FAERS Safety Report 9106042 (Version 1)
Quarter: 2013Q1

REPORT INFORMATION
  Report Type: Spontaneous
  Country: IE (occurrence: IE)
  Receive Date: 20130220
  Receipt Date: 20130220
  Transmission Date: 20140127
  Serious: Yes (Hospitalization)
  Sender: FDA-Public Use
  Company Number: IE-ELI_LILLY_AND_COMPANY-IE201302002766

PATIENT
  Sex: Female

DRUGS (10)
  1. FORSTEO [Suspect]
     Indication: OSTEOPOROSIS
     Dosage: 20MCG, DAILY
     Route: 058
     Dates: start: 20130124
  2. LACTULOSE [Concomitant]
     Dosage: UNK
  3. FUROSEMIDE [Concomitant]
  4. TELMISARTAN [Concomitant]
  5. PARACETAMOL [Concomitant]
  6. CARBIMAZOLE [Concomitant]
  7. ASPIRIN [Concomitant]
  8. ZOPICLONE [Concomitant]
  9. CALCIUM +D3 [Concomitant]
  10. PRAVASTATIN [Concomitant]

REACTIONS (1)
  - Haematoma [Not Recovered/Not Resolved]
